FAERS Safety Report 7416295-6 (Version None)
Quarter: 2011Q2

REPORT INFORMATION
  Report Type: 
  Country: None (occurrence: None)
  Receive Date: 20110414
  Receipt Date: 20110408
  Transmission Date: 20111010
  Serious: Yes (Death, Hospitalization)
  Sender: FDA-Public Use
  Company Number: GB-ELI_LILLY_AND_COMPANY-GB201104002175

PATIENT
  Age: 18 Year
  Sex: Male

DRUGS (2)
  1. GEMZAR [Suspect]
     Indication: LUNG NEOPLASM MALIGNANT
     Dosage: 1250 MG/M2, UNKNOWN
     Route: 065
  2. ANALGESICS [Concomitant]

REACTIONS (5)
  - JOINT SWELLING [None]
  - HYPERSENSITIVITY [None]
  - ARTHRALGIA [None]
  - NEOPLASM MALIGNANT [None]
  - PLEURITIC PAIN [None]
